FAERS Safety Report 7364976-5 (Version None)
Quarter: 2011Q1

REPORT INFORMATION
  Report Type: 
  Country: None (occurrence: None)
  Receive Date: 20110321
  Receipt Date: 20110310
  Transmission Date: 20110831
  Serious: Yes (Other)
  Sender: FDA-Public Use
  Company Number: US-SANOFI-AVENTIS-2011SA015267

PATIENT
  Age: 57 Year
  Sex: Female

DRUGS (2)
  1. PLAVIX [Suspect]
     Indication: CAROTID ARTERY STENOSIS
     Route: 065
  2. PLAVIX [Suspect]
     Indication: STENT PLACEMENT
     Route: 065

REACTIONS (3)
  - OFF LABEL USE [None]
  - CAROTID ARTERY STENOSIS [None]
  - PLATELET FUNCTION TEST ABNORMAL [None]
